FAERS Safety Report 12238519 (Version 3)
Quarter: 2016Q3

REPORT INFORMATION
  Report Type: Spontaneous
  Country: US (occurrence: US)
  Receive Date: 20160405
  Receipt Date: 20160826
  Transmission Date: 20161109
  Serious: Yes (Hospitalization, Disabling, Other)
  Sender: FDA-Public Use
  Company Number: US-009507513-1604USA000493

PATIENT
  Sex: Male
  Weight: 86.62 kg

DRUGS (1)
  1. PROPECIA [Suspect]
     Active Substance: FINASTERIDE
     Indication: ANDROGENETIC ALOPECIA
     Dosage: 1 MG, QD
     Route: 048
     Dates: start: 19980206, end: 20110728

REACTIONS (13)
  - Ejaculation disorder [Unknown]
  - Retinal detachment [Unknown]
  - Penis disorder [Unknown]
  - Brain injury [Unknown]
  - Sexual dysfunction [Not Recovered/Not Resolved]
  - Hormone level abnormal [Not Recovered/Not Resolved]
  - Psoriasis [Recovering/Resolving]
  - Libido decreased [Not Recovered/Not Resolved]
  - Nocturia [Unknown]
  - Large intestine polyp [Unknown]
  - Breast cancer male [Unknown]
  - Erectile dysfunction [Not Recovered/Not Resolved]
  - Arthralgia [Recovering/Resolving]

NARRATIVE: CASE EVENT DATE: 2000
